FAERS Safety Report 5734274-1 (Version None)
Quarter: 2008Q2

REPORT INFORMATION
  Report Type: 
  Country: None (occurrence: None)
  Receive Date: 20080507
  Receipt Date: 20080429
  Transmission Date: 20081010
  Serious: Yes (Hospitalization)
  Sender: FDA-Public Use
  Company Number: GXKR2008JP04047

PATIENT
  Age: 67 Year
  Sex: Male

DRUGS (2)
  1. PYRIDOSTIGMINE (NGX) (PYRIDOSTIGMINE) UNKNOWN [Suspect]
     Indication: MYASTHENIA GRAVIS
  2. AMBENONIUM(AMBENONIUM) [Suspect]
     Indication: MYASTHENIA GRAVIS

REACTIONS (8)
  - CALCINOSIS [None]
  - DIABETES MELLITUS INADEQUATE CONTROL [None]
  - DISEASE RECURRENCE [None]
  - EYELID PTOSIS [None]
  - HEPATIC NEOPLASM MALIGNANT [None]
  - MUSCULAR WEAKNESS [None]
  - PANCREATIC DISORDER [None]
  - PANCREATITIS ACUTE [None]
